FAERS Safety Report 8226314-5 (Version None)
Quarter: 2012Q1

REPORT INFORMATION
  Report Type: 
  Country: None (occurrence: None)
  Receive Date: 20120321
  Receipt Date: 20120307
  Transmission Date: 20120608
  Serious: Yes (Hospitalization)
  Sender: FDA-Public Use
  Company Number: JP-ROCHE-1032969

PATIENT
  Sex: Female
  Weight: 45 kg

DRUGS (3)
  1. LEVOFLOXACIN [Concomitant]
     Indication: UPPER RESPIRATORY TRACT INFLAMMATION
     Route: 048
     Dates: start: 20120107, end: 20120109
  2. RISPERDAL [Suspect]
     Indication: DELIRIUM
     Dosage: UNCERTAIN DOSAGE AND A DOSE
     Route: 048
     Dates: start: 20120110, end: 20120113
  3. ROCEPHIN [Suspect]
     Indication: UPPER RESPIRATORY TRACT INFLAMMATION
     Route: 041
     Dates: start: 20120107, end: 20120109

REACTIONS (2)
  - DELIRIUM [None]
  - ALTERED STATE OF CONSCIOUSNESS [None]
